FAERS Safety Report 7802919-8 (Version None)
Quarter: 2011Q4

REPORT INFORMATION
  Report Type: 
  Country: None (occurrence: None)
  Receive Date: 20111007
  Receipt Date: 20110929
  Transmission Date: 20120403
  Serious: Yes (Other)
  Sender: FDA-Public Use
  Company Number: FR-ELI_LILLY_AND_COMPANY-FR201109008319

PATIENT
  Sex: Female

DRUGS (5)
  1. KETOPROFEN [Concomitant]
     Dosage: UNK
  2. ALIMTA [Suspect]
     Dosage: 500 MG/M2, UNK
     Route: 042
     Dates: start: 20110715
  3. NEXIUM [Concomitant]
     Dosage: UNK
  4. ACETAMINOPHEN [Concomitant]
     Dosage: UNK
  5. PREDNISOLONE [Concomitant]
     Dosage: UNK

REACTIONS (8)
  - URINARY INCONTINENCE [None]
  - GAMMA-GLUTAMYLTRANSFERASE INCREASED [None]
  - SYNCOPE [None]
  - BLOOD ALKALINE PHOSPHATASE INCREASED [None]
  - ALANINE AMINOTRANSFERASE INCREASED [None]
  - ASPARTATE AMINOTRANSFERASE INCREASED [None]
  - PYREXIA [None]
  - LOSS OF CONSCIOUSNESS [None]
